FAERS Safety Report 9980632 (Version 2)
Quarter: 2014Q1

REPORT INFORMATION
  Report Type: Report from Study
  Country: MX (occurrence: MX)
  Receive Date: 20140307
  Receipt Date: 20140311
  Transmission Date: 20141002
  Serious: Yes (Other)
  Sender: FDA-Public Use
  Company Number: MX-ROCHE-1361242

PATIENT
  Age: 73 Year
  Sex: Male
  Weight: 60 kg

DRUGS (5)
  1. XELODA [Suspect]
     Indication: COLORECTAL CANCER
     Route: 065
  2. OXALIPLATIN [Suspect]
     Indication: COLORECTAL CANCER
     Route: 065
  3. IRINOTECAN [Concomitant]
     Indication: COLORECTAL CANCER
  4. 5-FU [Concomitant]
     Indication: COLORECTAL CANCER
  5. LEUCOVORIN [Concomitant]
     Indication: COLORECTAL CANCER

REACTIONS (2)
  - Disease progression [Unknown]
  - Vomiting [Unknown]
